FAERS Safety Report 25001206 (Version 4)
Quarter: 2025Q2

REPORT INFORMATION
  Report Type: Spontaneous
  Country: US (occurrence: US)
  Receive Date: 20250223
  Receipt Date: 20250501
  Transmission Date: 20250717
  Serious: No
  Sender: ABBVIE
  Company Number: US-ABBVIE-6145712

PATIENT
  Age: 10 Year
  Sex: Female

DRUGS (1)
  1. LUPRON DEPOT-PED [Suspect]
     Active Substance: LEUPROLIDE ACETATE
     Indication: Product used for unknown indication
     Route: 030

REACTIONS (4)
  - Product dispensing error [Unknown]
  - Device leakage [Not Recovered/Not Resolved]
  - Product quality issue [Not Recovered/Not Resolved]
  - Medication error [Unknown]
